FAERS Safety Report 18520488 (Version 1)
Quarter: 2020Q4

REPORT INFORMATION
  Report Type: Spontaneous
  Country: US (occurrence: US)
  Receive Date: 20201119
  Receipt Date: 20201119
  Transmission Date: 20210114
  Serious: No
  Sender: FDA-Public Use
  Company Number: US-AUROBINDO-AUR-APL-2020-010554

PATIENT
  Sex: Female

DRUGS (1)
  1. PANTOPRAZOLE SODIUM DELAYED-RELEASE TABLETS USP 20MG [Suspect]
     Active Substance: PANTOPRAZOLE SODIUM
     Indication: HYPERCHLORHYDRIA
     Dosage: 1 DOSAGE FORM, DAILY
     Route: 065
     Dates: start: 20200217, end: 20200219

REACTIONS (6)
  - Hypersensitivity [Recovered/Resolved]
  - Rash [Recovered/Resolved]
  - Flushing [Recovered/Resolved]
  - Anxiety [Recovered/Resolved]
  - Erythema [Recovered/Resolved]
  - Nervousness [Recovered/Resolved]

NARRATIVE: CASE EVENT DATE: 20200219
